FAERS Safety Report 8358187-4 (Version None)
Quarter: 2012Q2

REPORT INFORMATION
  Report Type: 
  Country: None (occurrence: None)
  Receive Date: 20120514
  Receipt Date: 20120507
  Transmission Date: 20120825
  Serious: Yes (Other)
  Sender: FDA-Public Use
  Company Number: US-GLAXOSMITHKLINE-A0976591A

PATIENT
  Sex: Female

DRUGS (4)
  1. ALBUTEROL [Concomitant]
  2. ADVAIR DISKUS 100/50 [Suspect]
     Dosage: 1PUFF TWICE PER DAY
     Route: 055
  3. PRILOSEC [Concomitant]
  4. ADVAIR DISKUS 100/50 [Suspect]
     Indication: ASTHMA
     Dosage: 1PUFF TWICE PER DAY
     Route: 055
     Dates: start: 20120401

REACTIONS (14)
  - CATARACT [None]
  - PHARYNGEAL OEDEMA [None]
  - CANDIDIASIS [None]
  - HEART RATE INCREASED [None]
  - DRUG ADMINISTRATION ERROR [None]
  - ARTHRALGIA [None]
  - VISUAL IMPAIRMENT [None]
  - GROIN PAIN [None]
  - WEIGHT INCREASED [None]
  - PAIN IN EXTREMITY [None]
  - CHOKING [None]
  - JOINT SWELLING [None]
  - DYSPHAGIA [None]
  - ASTHMA [None]
